FAERS Safety Report 16798421 (Version 1)
Quarter: 2019Q3

REPORT INFORMATION
  Report Type: Spontaneous
  Country: US (occurrence: US)
  Receive Date: 20190722
  Receipt Date: 20190722
  Transmission Date: 20191005
  Serious: No
  Sender: FDA-Public Use
  Company Number: None

PATIENT

DRUGS (1)
  1. NAPROSYN [Suspect]
     Active Substance: NAPROXEN
     Route: 048

REACTIONS (2)
  - Inappropriate schedule of product administration [None]
  - Transcription medication error [None]

NARRATIVE: CASE EVENT DATE: 2019
